FAERS Safety Report 8202704-1 (Version None)
Quarter: 2012Q1

REPORT INFORMATION
  Report Type: 
  Country: None (occurrence: None)
  Receive Date: 20120312
  Receipt Date: 20120301
  Transmission Date: 20120608
  Serious: Yes (Other)
  Sender: FDA-Public Use
  Company Number: US-ASTRAZENECA-2012SE14861

PATIENT
  Age: 51 Year
  Sex: Male

DRUGS (2)
  1. QUINIDINE HCL [Concomitant]
  2. NEXIUM [Suspect]
     Route: 048

REACTIONS (5)
  - PLASMACYTOMA [None]
  - GASTROOESOPHAGEAL REFLUX DISEASE [None]
  - DRUG DOSE OMISSION [None]
  - CANCER IN REMISSION [None]
  - HYPERTENSION [None]
